FAERS Safety Report 5510258-3 (Version None)
Quarter: 2007Q4

REPORT INFORMATION
  Report Type: 
  Country: None (occurrence: None)
  Receive Date: 20071030
  Receipt Date: 20060906
  Transmission Date: 20080405
  Serious: Yes (Hospitalization)
  Sender: FDA-Public Use
  Company Number: HQWYE345206SEP06

PATIENT
  Age: 78 Year
  Sex: Female
  Weight: 64.5 kg

DRUGS (10)
  1. ENBREL [Suspect]
     Indication: RHEUMATOID ARTHRITIS
     Dosage: 25 MG 1X PER 1 WK, SUBCUTANEOUS
     Route: 058
     Dates: start: 20020206, end: 20060529
  2. PREMARIN [Suspect]
  3. RESTORIL [Suspect]
  4. METHOTREXATE [Concomitant]
  5. CELEXA [Concomitant]
  6. CELEBREX [Concomitant]
  7. PREDNISONE [Concomitant]
  8. FOLIC ACID [Concomitant]
  9. ACETAMINOPHEN [Concomitant]
  10. METOPROLOL TARTRATE [Concomitant]

REACTIONS (1)
  - CEREBROVASCULAR ACCIDENT [None]
